FAERS Safety Report 23348030 (Version 1)
Quarter: 2023Q4

REPORT INFORMATION
  Report Type: Spontaneous
  Country: JP (occurrence: JP)
  Receive Date: 20231228
  Receipt Date: 20231228
  Transmission Date: 20240109
  Serious: Yes (Other)
  Sender: FDA-Public Use
  Company Number: JP-Eisai-202311771_FYC_P_1

PATIENT
  Age: 41 Year
  Sex: Female

DRUGS (1)
  1. FYCOMPA [Suspect]
     Active Substance: PERAMPANEL
     Indication: Product used for unknown indication
     Dosage: FREQUENCY UNKNOWN
     Route: 048
     Dates: start: 202102, end: 202104

REACTIONS (5)
  - Irritability [Unknown]
  - Aggression [Unknown]
  - Hostility [Unknown]
  - Anxiety [Unknown]
  - Depression [Unknown]
